FAERS Safety Report 22935586 (Version 7)
Quarter: 2023Q4

REPORT INFORMATION
  Report Type: Report from Study
  Country: AR (occurrence: AR)
  Receive Date: 20230912
  Receipt Date: 20231124
  Transmission Date: 20240110
  Serious: Yes (Life-Threatening, Hospitalization)
  Sender: FDA-Public Use
  Company Number: AR-JNJFOC-20230915094

PATIENT
  Age: 54 Year
  Sex: Male
  Weight: 99 kg

DRUGS (3)
  1. AMIVANTAMAB [Suspect]
     Active Substance: AMIVANTAMAB
     Indication: Non-small cell lung cancer
     Dosage: 25 R VIAL
     Route: 058
     Dates: start: 20230807, end: 20230904
  2. TIMOLOL [Concomitant]
     Active Substance: TIMOLOL
     Indication: Prophylaxis
     Route: 047
     Dates: start: 20010619
  3. ETORICOXIB [Concomitant]
     Active Substance: ETORICOXIB
     Indication: Musculoskeletal chest pain
     Route: 048
     Dates: start: 20230301

REACTIONS (2)
  - Cardiac tamponade [Recovered/Resolved with Sequelae]
  - Septic shock [Recovered/Resolved]

NARRATIVE: CASE EVENT DATE: 20230907
